FAERS Safety Report 9004458 (Version 1)
Quarter: 2013Q1

REPORT INFORMATION
  Report Type: Report from Study
  Country: DE (occurrence: DE)
  Receive Date: 20130108
  Receipt Date: 20130108
  Transmission Date: 20140127
  Serious: Yes (Hospitalization, Disabling)
  Sender: FDA-Public Use
  Company Number: DE-ROCHE-1174419

PATIENT
  Sex: Male

DRUGS (1)
  1. ALTEPLASE [Suspect]
     Indication: SKIN ULCER
     Route: 065

REACTIONS (3)
  - Epistaxis [Recovered/Resolved]
  - Gangrene [Recovered/Resolved with Sequelae]
  - Haematuria [Recovered/Resolved]
